FAERS Safety Report 9282939 (Version 2)
Quarter: 2013Q2

REPORT INFORMATION
  Report Type: Spontaneous
  Country: US (occurrence: US)
  Receive Date: 20130510
  Receipt Date: 20130514
  Transmission Date: 20140414
  Serious: Yes (Hospitalization)
  Sender: FDA-Public Use
  Company Number: PHHY2013US045490

PATIENT
  Age: 74 Year
  Sex: Female

DRUGS (10)
  1. ISONIAZID [Suspect]
     Indication: LATENT TUBERCULOSIS
     Dosage: 300 MG, DAILY
  2. MIRTAZAPINE [Concomitant]
  3. SIMVASTATIN [Concomitant]
  4. TRAMADOL [Concomitant]
  5. RANITIDINE [Concomitant]
  6. COLACE [Concomitant]
  7. SENNA [Concomitant]
  8. FLUTICASONE [Concomitant]
  9. VITAMIN D [Concomitant]
  10. FERROUS GLUCONATE [Concomitant]

REACTIONS (6)
  - Pancreatitis acute [Recovered/Resolved]
  - Vomiting [Recovered/Resolved]
  - Abdominal pain upper [Recovered/Resolved]
  - Abdominal tenderness [Recovered/Resolved]
  - Abdominal rigidity [Recovered/Resolved]
  - Leukocytosis [Recovered/Resolved]
